FAERS Safety Report 20787767 (Version 1)
Quarter: 2022Q2

REPORT INFORMATION
  Report Type: Spontaneous
  Country: CA (occurrence: CA)
  Receive Date: 20220505
  Receipt Date: 20220505
  Transmission Date: 20220721
  Serious: Yes (Other)
  Sender: FDA-Public Use
  Company Number: CA-JNJFOC-20220457349

PATIENT
  Age: 33 Year
  Sex: Female

DRUGS (2)
  1. REMICADE [Suspect]
     Active Substance: INFLIXIMAB
     Indication: Crohn^s disease
     Route: 042
  2. METHOTREXATE [Concomitant]
     Active Substance: METHOTREXATE
     Route: 065

REACTIONS (7)
  - Vessel puncture site pain [Unknown]
  - Vulva cyst [Unknown]
  - Increased tendency to bruise [Unknown]
  - Cystitis [Unknown]
  - Abdominal discomfort [Unknown]
  - Off label use [Unknown]
  - Inappropriate schedule of product administration [Unknown]
